FAERS Safety Report 19116295 (Version 1)
Quarter: 2021Q2

REPORT INFORMATION
  Report Type: Spontaneous
  Country: DE (occurrence: DE)
  Receive Date: 20210409
  Receipt Date: 20210409
  Transmission Date: 20210717
  Serious: Yes (Hospitalization)
  Sender: FDA-Public Use
  Company Number: NVSC2021DE074701

PATIENT
  Sex: Female
  Weight: 70 kg

DRUGS (2)
  1. PEGFILGRASTIM [Suspect]
     Active Substance: PEGFILGRASTIM
     Indication: PRODUCT USED FOR UNKNOWN INDICATION
     Dosage: 6 MG (PRE?FILLED SYRINGE, 1ST CYCLE? BMI 26.1)
     Route: 058
     Dates: start: 20210121, end: 20210121
  2. PEGFILGRASTIM [Suspect]
     Active Substance: PEGFILGRASTIM
     Dosage: 6 MG (PRE?FILLED SYRINGE, 2ND CYCLE?BMI 25.4)
     Route: 058
     Dates: start: 20210204, end: 20210204

REACTIONS (1)
  - Staphylococcal sepsis [Recovered/Resolved]

NARRATIVE: CASE EVENT DATE: 20210223
